FAERS Safety Report 7765734-X (Version None)
Quarter: 2011Q3

REPORT INFORMATION
  Report Type: 
  Country: None (occurrence: None)
  Receive Date: 20110921
  Receipt Date: 20110311
  Transmission Date: 20111222
  Serious: No
  Sender: FDA-Public Use
  Company Number: US-BAYER-2011-066969

PATIENT
  Age: 21 Year
  Sex: Female
  Weight: 58 kg

DRUGS (2)
  1. AMOXIL [Concomitant]
  2. ALEVE (CAPLET) [Suspect]
     Indication: DYSMENORRHOEA
     Dosage: 3 DF, UNK
     Route: 048
     Dates: start: 20110310

REACTIONS (1)
  - ABDOMINAL PAIN UPPER [None]
